FAERS Safety Report 7645081-7 (Version None)
Quarter: 2011Q3

REPORT INFORMATION
  Report Type: 
  Country: None (occurrence: None)
  Receive Date: 20110729
  Receipt Date: 20110715
  Transmission Date: 20111222
  Serious: Yes (Other)
  Sender: FDA-Public Use
  Company Number: PHHY2011US56744

PATIENT
  Sex: Female
  Weight: 57.143 kg

DRUGS (2)
  1. ESTRADIOL [Concomitant]
     Dosage: UNK
  2. GILENYA [Suspect]
     Indication: RELAPSING-REMITTING MULTIPLE SCLEROSIS
     Dosage: 0.5 MG, QD
     Route: 048
     Dates: start: 20070820

REACTIONS (5)
  - INFLAMMATION [None]
  - BREAST CYST [None]
  - CONCUSSION [None]
  - FALL [None]
  - INCONTINENCE [None]
